FAERS Safety Report 18566319 (Version 3)
Quarter: 2021Q1

REPORT INFORMATION
  Report Type: Spontaneous
  Country: US (occurrence: US)
  Receive Date: 20201201
  Receipt Date: 20210308
  Transmission Date: 20210419
  Serious: Yes (Hospitalization, Other)
  Sender: FDA-Public Use
  Company Number: US-ALXN-A202017513

PATIENT
  Age: 61 Year
  Sex: Male

DRUGS (1)
  1. SOLIRIS [Suspect]
     Active Substance: ECULIZUMAB
     Indication: MYASTHENIA GRAVIS
     Dosage: UNK, Q2W
     Route: 065
     Dates: start: 2019

REACTIONS (6)
  - Plasmapheresis [Unknown]
  - Myasthenia gravis crisis [Unknown]
  - Nasal septum deviation [Unknown]
  - Knee arthroplasty [Unknown]
  - Myasthenia gravis [Unknown]
  - Ill-defined disorder [Unknown]

NARRATIVE: CASE EVENT DATE: 2019
